FAERS Safety Report 6787745-3 (Version None)
Quarter: 2010Q2

REPORT INFORMATION
  Report Type: 
  Country: None (occurrence: None)
  Receive Date: 20100623
  Receipt Date: 20070702
  Transmission Date: 20101027
  Serious: Yes (Other)
  Sender: FDA-Public Use
  Company Number: US-PFIZER INC-2007054414

PATIENT
  Sex: Female
  Weight: 58 kg

DRUGS (3)
  1. DEPO-PROVERA SUSPENSION/INJ [Suspect]
     Indication: CONTRACEPTION
     Dosage: 1ST INJECTION
     Route: 030
     Dates: start: 20070301, end: 20070301
  2. DEPO-PROVERA SUSPENSION/INJ [Suspect]
     Dosage: 2ND INJECTION
     Route: 030
     Dates: start: 20070625, end: 20070625
  3. MULTI-VITAMINS [Concomitant]

REACTIONS (5)
  - HYPOAESTHESIA [None]
  - MUSCULAR WEAKNESS [None]
  - PAIN IN EXTREMITY [None]
  - PARAESTHESIA [None]
  - SYNCOPE [None]
